FAERS Safety Report 14148570 (Version 2)
Quarter: 2019Q1

REPORT INFORMATION
  Report Type: Spontaneous
  Country: US (occurrence: US)
  Receive Date: 20171101
  Receipt Date: 20190318
  Transmission Date: 20190417
  Serious: No
  Sender: FDA-Public Use
  Company Number: US-SHIRE-US201719911

PATIENT
  Sex: Female

DRUGS (2)
  1. RESTASIS [Concomitant]
     Active Substance: CYCLOSPORINE
     Indication: PRODUCT USED FOR UNKNOWN INDICATION
  2. XIIDRA [Suspect]
     Active Substance: LIFITEGRAST
     Indication: PRODUCT USED FOR UNKNOWN INDICATION
     Dosage: UNK, UNKNOWN
     Route: 065
     Dates: start: 201704

REACTIONS (8)
  - Instillation site vesicles [Recovered/Resolved]
  - Eyelid margin crusting [Recovered/Resolved]
  - Off label use [Unknown]
  - Instillation site foreign body sensation [Recovered/Resolved]
  - Instillation site reaction [Recovered/Resolved]
  - Instillation site swelling [Recovered/Resolved]
  - Instillation site dryness [Recovered/Resolved]
  - Instillation site discharge [Recovered/Resolved]
